FAERS Safety Report 18077738 (Version 1)
Quarter: 2020Q3

REPORT INFORMATION
  Report Type: Other
  Country: GB (occurrence: GB)
  Receive Date: 20200728
  Receipt Date: 20200728
  Transmission Date: 20201103
  Serious: Yes (Other)
  Sender: FDA-Public Use
  Company Number: GB-ROCHE-2649294

PATIENT
  Sex: Female

DRUGS (8)
  1. FLUDARABINE [Concomitant]
     Active Substance: FLUDARABINE PHOSPHATE
     Indication: ACUTE MYELOID LEUKAEMIA
  2. FOSCAVIR [Suspect]
     Active Substance: FOSCARNET SODIUM
     Indication: CYTOMEGALOVIRUS INFECTION REACTIVATION
     Dosage: LAST DOSE ON 15/JUN/2020
     Route: 065
     Dates: start: 20200606
  3. CYTARABINE. [Concomitant]
     Active Substance: CYTARABINE
     Indication: ACUTE MYELOID LEUKAEMIA
  4. VALGANCICLOVIR. [Suspect]
     Active Substance: VALGANCICLOVIR
     Indication: CYTOMEGALOVIRUS INFECTION REACTIVATION
     Route: 065
     Dates: start: 20200519, end: 20200609
  5. DAUNORUBICIN [Concomitant]
     Active Substance: DAUNORUBICIN
     Indication: ACUTE MYELOID LEUKAEMIA
  6. VALGANCICLOVIR. [Suspect]
     Active Substance: VALGANCICLOVIR
     Route: 065
     Dates: start: 20200709
  7. IDARUBICIN [Concomitant]
     Active Substance: IDARUBICIN
     Indication: ACUTE MYELOID LEUKAEMIA
  8. G?CSF [Concomitant]
     Active Substance: GRANULOCYTE COLONY-STIMULATING FACTOR NOS
     Indication: ACUTE MYELOID LEUKAEMIA

REACTIONS (2)
  - Nausea [Unknown]
  - Glomerular filtration rate decreased [Unknown]
